FAERS Safety Report 7866283-0 (Version None)
Quarter: 2011Q4

REPORT INFORMATION
  Report Type: 
  Country: None (occurrence: None)
  Receive Date: 20111028
  Receipt Date: 20110517
  Transmission Date: 20120403
  Serious: No
  Sender: FDA-Public Use
  Company Number: US-GLAXOSMITHKLINE-A0929033A

PATIENT
  Sex: Female

DRUGS (1)
  1. ADVAIR DISKUS 100/50 [Suspect]
     Dosage: 2PUFF PER DAY
     Route: 065
     Dates: start: 19950101

REACTIONS (3)
  - WEIGHT INCREASED [None]
  - DRUG ADMINISTRATION ERROR [None]
  - PALPITATIONS [None]
